FAERS Safety Report 8171721-2 (Version None)
Quarter: 2012Q1

REPORT INFORMATION
  Report Type: 
  Country: None (occurrence: None)
  Receive Date: 20120228
  Receipt Date: 20120222
  Transmission Date: 20120608
  Serious: Yes (Hospitalization)
  Sender: FDA-Public Use
  Company Number: US-AMGEN-USACT2012012014

PATIENT
  Sex: Male
  Weight: 80.3 kg

DRUGS (4)
  1. RADIATION THERAPY [Suspect]
     Dosage: UNK
     Dates: start: 20120120
  2. PANITUMUMAB [Suspect]
     Indication: LUNG SQUAMOUS CELL CARCINOMA STAGE UNSPECIFIED
     Dosage: UNK UNK, QWK
     Dates: start: 20120120
  3. CARBOPLATIN [Suspect]
     Indication: LUNG SQUAMOUS CELL CARCINOMA STAGE UNSPECIFIED
     Dosage: UNK UNK, QWK
     Dates: start: 20120120
  4. TAXOL [Suspect]
     Indication: LUNG SQUAMOUS CELL CARCINOMA STAGE UNSPECIFIED
     Dosage: UNK UNK, QWK
     Dates: start: 20120120

REACTIONS (4)
  - NAUSEA [None]
  - VOMITING [None]
  - DIARRHOEA [None]
  - GASTRITIS [None]
